FAERS Safety Report 5412792-3 (Version None)
Quarter: 2007Q3

REPORT INFORMATION
  Report Type: 
  Country: None (occurrence: None)
  Receive Date: 20070813
  Receipt Date: 20070730
  Transmission Date: 20080115
  Serious: Yes (Other)
  Sender: FDA-Public Use
  Company Number: US-ELI_LILLY_AND_COMPANY-US200707006950

PATIENT
  Age: 57 Year
  Sex: Male

DRUGS (2)
  1. CYMBALTA [Suspect]
     Indication: DEPRESSION
     Dosage: 60 MG, DAILY (1/D)
     Dates: start: 20070601, end: 20070719
  2. VERAPAMIL [Concomitant]
     Indication: BLOOD PRESSURE
     Dosage: UNK MG, EACH MORNING

REACTIONS (11)
  - ANXIETY [None]
  - ASTHENIA [None]
  - BLOOD PRESSURE INCREASED [None]
  - DIZZINESS [None]
  - FEELING ABNORMAL [None]
  - FLATULENCE [None]
  - HYPERHIDROSIS [None]
  - SOMNOLENCE [None]
  - SPEECH DISORDER [None]
  - STOMACH DISCOMFORT [None]
  - VOMITING [None]
